FAERS Safety Report 8370681-9 (Version None)
Quarter: 2012Q2

REPORT INFORMATION
  Report Type: 
  Country: None (occurrence: None)
  Receive Date: 20120518
  Receipt Date: 20120516
  Transmission Date: 20120825
  Serious: Yes (Other)
  Sender: FDA-Public Use
  Company Number: CH-PFIZER INC-2012120677

PATIENT
  Age: 70 Year
  Sex: Female

DRUGS (9)
  1. ZOLPIDEM [Interacting]
     Dosage: 10 MG, 1X/DAY
     Route: 048
  2. IRBESARTAN [Concomitant]
     Dosage: 300 MG, 1X/DAY
  3. ANAFRANIL [Interacting]
     Dosage: 25 MG, 2X/DAY
     Route: 048
     Dates: start: 20120130, end: 20120202
  4. XANAX [Suspect]
     Dosage: 0.5MG MORNING, 1MG EVENING
     Route: 048
  5. ANAFRANIL [Interacting]
     Dosage: 50 MG, 2X/DAY
     Dates: start: 20120304, end: 20120307
  6. SIMVASTATIN [Concomitant]
     Dosage: 20 MG, 1X/DAY
     Route: 048
  7. SINTROM [Concomitant]
     Dosage: UNK
     Route: 048
  8. ANAFRANIL [Interacting]
     Dosage: 50 MG, 2X/DAY
     Route: 048
     Dates: start: 20120203, end: 20120216
  9. ANAFRANIL [Interacting]
     Dosage: 75 MG, 2X/DAY
     Route: 048
     Dates: start: 20120217, end: 20120303

REACTIONS (10)
  - DRUG LEVEL INCREASED [None]
  - RHABDOMYOLYSIS [None]
  - SYSTEMIC INFLAMMATORY RESPONSE SYNDROME [None]
  - FALL [None]
  - VERTIGO [None]
  - DIZZINESS [None]
  - MUSCULAR WEAKNESS [None]
  - GENERAL PHYSICAL HEALTH DETERIORATION [None]
  - DRUG INTERACTION [None]
  - BLOOD CREATINE PHOSPHOKINASE INCREASED [None]
